FAERS Safety Report 15246156 (Version 2)
Quarter: 2018Q3

REPORT INFORMATION
  Report Type: Report from Study
  Country: US (occurrence: US)
  Receive Date: 20180806
  Receipt Date: 20180917
  Transmission Date: 20181010
  Serious: Yes (Death, Hospitalization, Other)
  Sender: FDA-Public Use
  Company Number: US-GILEAD-2018-0353093

PATIENT
  Age: 9 Year
  Sex: Female

DRUGS (1)
  1. AMBRISENTAN [Suspect]
     Active Substance: AMBRISENTAN
     Indication: PULMONARY ARTERIAL HYPERTENSION
     Dosage: 10 MG, QD
     Route: 065
     Dates: start: 20170220, end: 20180903

REACTIONS (3)
  - Death [Fatal]
  - Off label use [Not Recovered/Not Resolved]
  - Respiratory distress [Unknown]

NARRATIVE: CASE EVENT DATE: 20170220
